FAERS Safety Report 17160405 (Version 1)
Quarter: 2019Q4

REPORT INFORMATION
  Report Type: Spontaneous
  Country: US (occurrence: US)
  Receive Date: 20191216
  Receipt Date: 20191216
  Transmission Date: 20200122
  Serious: Yes (Other)
  Sender: FDA-Public Use
  Company Number: US-OCULAR THERAPEUTIX-2019OCX00030

PATIENT
  Age: 67 Year
  Sex: Male

DRUGS (1)
  1. DEXTENZA [Suspect]
     Active Substance: DEXAMETHASONE
     Indication: CATARACT OPERATION
     Dosage: 0.4 MG, ONCE
     Dates: start: 20190801, end: 2019

REACTIONS (4)
  - Macular reflex abnormal [Unknown]
  - Cystoid macular oedema [Recovered/Resolved]
  - Retinal haemorrhage [Unknown]
  - Eye inflammation [Recovered/Resolved]

NARRATIVE: CASE EVENT DATE: 2019
